FAERS Safety Report 7663247-7 (Version None)
Quarter: 2011Q3

REPORT INFORMATION
  Report Type: 
  Country: None (occurrence: None)
  Receive Date: 20110805
  Receipt Date: 20101108
  Transmission Date: 20111222
  Serious: No
  Sender: FDA-Public Use
  Company Number: US-ABBOTT-10P-163-0672608-00

PATIENT
  Sex: Male
  Weight: 88.53 kg

DRUGS (7)
  1. COSOPT [Concomitant]
     Indication: PRODUCT USED FOR UNKNOWN INDICATION
     Dosage: GTTS
  2. PLAVIX [Concomitant]
     Indication: CARDIAC DISORDER
  3. NIASPAN [Suspect]
     Indication: BLOOD CHOLESTEROL
     Dates: start: 20100701, end: 20101001
  4. ZETIA [Concomitant]
     Indication: PRODUCT USED FOR UNKNOWN INDICATION
  5. NIASPAN [Suspect]
     Dates: start: 20101101
  6. ALPHAGAN P [Concomitant]
     Indication: GLAUCOMA
  7. TOPROL-XL [Concomitant]
     Indication: PRODUCT USED FOR UNKNOWN INDICATION

REACTIONS (2)
  - MIDDLE INSOMNIA [None]
  - FLUSHING [None]
